FAERS Safety Report 13919243 (Version 6)
Quarter: 2017Q4

REPORT INFORMATION
  Report Type: Spontaneous
  Country: US (occurrence: US)
  Receive Date: 20170830
  Receipt Date: 20171122
  Transmission Date: 20180320
  Serious: Yes (Hospitalization, Other)
  Sender: FDA-Public Use
  Company Number: US-UNITED THERAPEUTICS-UNT-2017-011692

PATIENT
  Age: 71 Year
  Sex: Female
  Weight: 68.27 kg

DRUGS (8)
  1. TYVASO [Suspect]
     Active Substance: TREPROSTINIL
     Dosage: 54 ?G, TID
  2. TYVASO [Suspect]
     Active Substance: TREPROSTINIL
     Dosage: UNK
  3. TYVASO [Suspect]
     Active Substance: TREPROSTINIL
     Dosage: 18-54 MICROGRAMS, TID
  4. TYVASO [Suspect]
     Active Substance: TREPROSTINIL
     Dosage: 48 MICROGRAMS, TID
  5. TYVASO [Suspect]
     Active Substance: TREPROSTINIL
     Dosage: 36 MICROGRAMS, TID
  6. TYVASO [Suspect]
     Active Substance: TREPROSTINIL
     Indication: PULMONARY ARTERIAL HYPERTENSION
     Dosage: 18-54 MICROGRAMS, QID
     Dates: start: 20170801
  7. TYVASO [Suspect]
     Active Substance: TREPROSTINIL
     Dosage: 24 MICROGRAMS, TID
  8. REVATIO [Concomitant]
     Active Substance: SILDENAFIL CITRATE
     Indication: PRODUCT USED FOR UNKNOWN INDICATION
     Dosage: UNK
     Route: 065

REACTIONS (16)
  - Haemoptysis [Unknown]
  - Respiratory tract infection [Unknown]
  - Oedema peripheral [Unknown]
  - Off label use [Unknown]
  - Productive cough [Unknown]
  - Pyrexia [Unknown]
  - Nausea [Unknown]
  - Dizziness [Unknown]
  - Renal impairment [Unknown]
  - Bradycardia [Unknown]
  - Rhinorrhoea [Unknown]
  - Hypotension [Unknown]
  - Chest pain [Not Recovered/Not Resolved]
  - Oropharyngeal pain [Unknown]
  - Sputum discoloured [Unknown]
  - Respiratory tract congestion [Unknown]

NARRATIVE: CASE EVENT DATE: 2017
